FAERS Safety Report 4294154-8 (Version None)
Quarter: 2004Q1

REPORT INFORMATION
  Report Type: 
  Country: None (occurrence: None)
  Receive Date: 20040213
  Receipt Date: 20040205
  Transmission Date: 20041129
  Serious: Yes (Hospitalization)
  Sender: FDA-Public Use
  Company Number: PHRM2004FR00749

PATIENT
  Age: 71 Year
  Sex: Male

DRUGS (8)
  1. EXELON [Suspect]
     Dosage: 3 MG/DAY
     Route: 048
  2. FONZYLANE [Suspect]
     Dosage: 300 MG/DAY
     Route: 048
  3. DIFFU K [Concomitant]
     Route: 048
  4. ZOCOR [Concomitant]
     Route: 048
  5. DOLIPRANE [Concomitant]
     Route: 048
  6. AMLOR [Concomitant]
     Route: 048
  7. VASTAREL ^BIOPHARMA^ [Concomitant]
     Route: 048
  8. ASPIRIN [Concomitant]
     Dosage: 160 MG/DAY
     Route: 048

REACTIONS (11)
  - ABNORMAL BEHAVIOUR [None]
  - APHASIA [None]
  - BLOOD ALKALINE PHOSPHATASE INCREASED [None]
  - BRAIN SCAN ABNORMAL [None]
  - CEREBRAL ATROPHY [None]
  - COMPUTERISED TOMOGRAM ABNORMAL [None]
  - DEPRESSED LEVEL OF CONSCIOUSNESS [None]
  - GRAND MAL CONVULSION [None]
  - INTERNATIONAL NORMALISED RATIO DECREASED [None]
  - MALAISE [None]
  - TONIC CLONIC MOVEMENTS [None]
